FAERS Safety Report 5064712-1 (Version None)
Quarter: 2006Q3

REPORT INFORMATION
  Report Type: 
  Country: None (occurrence: None)
  Receive Date: 20060728
  Receipt Date: 20060725
  Transmission Date: 20061208
  Serious: Yes (Death, Hospitalization)
  Sender: FDA-Public Use
  Company Number: FR-GLAXOSMITHKLINE-B0432357A

PATIENT
  Age: 57 Year
  Sex: Female

DRUGS (1)
  1. ARIXTRA [Suspect]
     Indication: PULMONARY EMBOLISM
     Dosage: 7.5MG PER DAY
     Route: 058
     Dates: start: 20060415, end: 20060523

REACTIONS (9)
  - ABDOMINAL PAIN [None]
  - DYSPNOEA [None]
  - HAEMATURIA [None]
  - HEART RATE INCREASED [None]
  - MELAENA [None]
  - MUSCLE HAEMORRHAGE [None]
  - PURPURA [None]
  - SOMNOLENCE [None]
  - THROMBOCYTOPENIA [None]
